FAERS Safety Report 4645780-5 (Version None)
Quarter: 2005Q2

REPORT INFORMATION
  Report Type: 
  Country: None (occurrence: None)
  Receive Date: 20050425
  Receipt Date: 20050408
  Transmission Date: 20051028
  Serious: Yes (Other)
  Sender: FDA-Public Use
  Company Number: 200510181BYL

PATIENT
  Age: 65 Year
  Sex: Male

DRUGS (1)
  1. ADALAT [Suspect]
     Dosage: 100 MG, QD, ORAL
     Route: 048
     Dates: start: 20020601, end: 20020701

REACTIONS (2)
  - BLOOD PRESSURE DECREASED [None]
  - CEREBRAL INFARCTION [None]
